FAERS Safety Report 7725665-8 (Version None)
Quarter: 2011Q3

REPORT INFORMATION
  Report Type: 
  Country: None (occurrence: None)
  Receive Date: 20110902
  Receipt Date: 20110824
  Transmission Date: 20111222
  Serious: Yes (Hospitalization)
  Sender: FDA-Public Use
  Company Number: PHEH2011US02394

PATIENT
  Sex: Female

DRUGS (3)
  1. TEGRETOL [Suspect]
     Dosage: 200 MG, TID
  2. THYROID MEDICATION [Concomitant]
     Dosage: UNK UKN, UNK
  3. HIGH BLOOD PRESSURE MEDICATION [Concomitant]
     Dosage: UNK UKN, UNK

REACTIONS (3)
  - HEADACHE [None]
  - CRYING [None]
  - ASTHMA [None]
